FAERS Safety Report 6331068-3 (Version None)
Quarter: 2009Q3

REPORT INFORMATION
  Report Type: 
  Country: None (occurrence: None)
  Receive Date: 20090827
  Receipt Date: 20090821
  Transmission Date: 20100115
  Serious: Yes (Hospitalization)
  Sender: FDA-Public Use
  Company Number: B0590301A

PATIENT
  Sex: Female
  Weight: 31 kg

DRUGS (4)
  1. ZINACEF [Suspect]
     Indication: DRUG USE FOR UNKNOWN INDICATION
     Dosage: 750MG TWICE PER DAY
     Route: 030
     Dates: start: 20090726, end: 20090726
  2. MUCOSOLVAN [Concomitant]
  3. TANTUM VERDE [Concomitant]
  4. APO NAPROXEN [Concomitant]

REACTIONS (3)
  - DYSPNOEA [None]
  - RASH MACULAR [None]
  - RASH PRURITIC [None]
